FAERS Safety Report 5146096-3 (Version None)
Quarter: 2006Q4

REPORT INFORMATION
  Report Type: 
  Country: None (occurrence: None)
  Receive Date: 20061108
  Receipt Date: 20061027
  Transmission Date: 20070319
  Serious: Yes (Hospitalization)
  Sender: FDA-Public Use
  Company Number: FR-AVENTIS-200613826FR

PATIENT
  Sex: Male

DRUGS (1)
  1. ARAVA [Suspect]
     Indication: RHEUMATOID NODULE
     Route: 048

REACTIONS (3)
  - HYPERTENSION [None]
  - PERICARDITIS [None]
  - VIRAL PERICARDITIS [None]
